FAERS Safety Report 10690758 (Version 1)
Quarter: 2015Q1

REPORT INFORMATION
  Report Type: Spontaneous
  Country: US (occurrence: US)
  Receive Date: 20150105
  Receipt Date: 20150105
  Transmission Date: 20150720
  Serious: Yes (Other)
  Sender: FDA-Public Use
  Company Number: US-PFIZER INC-2014360593

PATIENT
  Sex: Female
  Weight: 68.27 kg

DRUGS (3)
  1. ADVIL [Suspect]
     Active Substance: IBUPROFEN
     Dosage: 1 DF, EVERY 6 HOURS
     Dates: end: 20141227
  2. ADVIL [Suspect]
     Active Substance: IBUPROFEN
     Indication: FOOT OPERATION
     Dosage: 2 DF, 3X/DAY
     Dates: start: 20141223
  3. SYNTHROID [Concomitant]
     Active Substance: LEVOTHYROXINE SODIUM
     Indication: THYROID DISORDER
     Dosage: 125 ?G, 1X/DAY

REACTIONS (8)
  - Coeliac disease [Recovering/Resolving]
  - Chills [Recovering/Resolving]
  - Product contamination [Unknown]
  - Abdominal pain [Recovering/Resolving]
  - Muscle spasms [Recovering/Resolving]
  - Tremor [Recovering/Resolving]
  - Agitation [Recovering/Resolving]
  - Anxiety [Recovering/Resolving]
